FAERS Safety Report 5482430-2 (Version None)
Quarter: 2007Q4

REPORT INFORMATION
  Report Type: 
  Country: None (occurrence: None)
  Receive Date: 20071011
  Receipt Date: 20071002
  Transmission Date: 20080405
  Serious: Yes (Life-Threatening, Hospitalization)
  Sender: FDA-Public Use
  Company Number: D0054616A

PATIENT
  Age: 63 Year
  Sex: Male
  Weight: 98 kg

DRUGS (4)
  1. AVANDAMET [Suspect]
     Route: 048
     Dates: start: 20060328, end: 20070916
  2. ENABETA [Concomitant]
     Dosage: 35MG PER DAY
     Route: 048
     Dates: start: 20070323
  3. SIMVASTATIN [Concomitant]
     Dosage: 30MG PER DAY
     Route: 048
     Dates: start: 20070423
  4. DICLOFENAC SODIUM [Concomitant]
     Route: 065

REACTIONS (9)
  - ARTERIOSCLEROSIS CORONARY ARTERY [None]
  - ATRIAL FIBRILLATION [None]
  - CAROTID ARTERY STENOSIS [None]
  - CORONARY ARTERY DISEASE [None]
  - HYPOKINESIA [None]
  - LEFT VENTRICULAR HYPERTROPHY [None]
  - MYOCARDIAL INFARCTION [None]
  - POSTINFARCTION ANGINA [None]
  - TACHYARRHYTHMIA [None]
